FAERS Safety Report 12494264 (Version 1)
Quarter: 2016Q2

REPORT INFORMATION
  Report Type: Report from Study
  Country: US (occurrence: US)
  Receive Date: 20160623
  Receipt Date: 20160623
  Transmission Date: 20160815
  Serious: Yes (Hospitalization)
  Sender: FDA-Public Use
  Company Number: US-ASTRAZENECA-2016SE66238

PATIENT
  Age: 72 Year
  Sex: Female

DRUGS (11)
  1. AZD2014 [Suspect]
     Active Substance: INVESTIGATIONAL PRODUCT
     Indication: FALLOPIAN TUBE CANCER
     Route: 048
     Dates: start: 20160527
  2. NORVASC [Concomitant]
     Active Substance: AMLODIPINE BESYLATE
     Dosage: 5 MG
     Route: 065
  3. AZD2014 [Suspect]
     Active Substance: INVESTIGATIONAL PRODUCT
     Indication: ENDOMETRIAL CANCER RECURRENT
     Route: 048
     Dates: start: 20160527
  4. NORCO [Concomitant]
     Active Substance: ACETAMINOPHEN\HYDROCODONE BITARTRATE
     Dosage: 10MG-325MG
     Route: 065
  5. AZD2281 [Suspect]
     Active Substance: OLAPARIB
     Indication: FALLOPIAN TUBE CANCER
     Route: 048
     Dates: start: 20160527
  6. BIOTIN [Concomitant]
     Active Substance: BIOTIN
     Route: 048
  7. PEPCID [Concomitant]
     Active Substance: FAMOTIDINE
     Dosage: 20 MG
     Route: 065
  8. VITAMIN B12 [Concomitant]
     Active Substance: CYANOCOBALAMIN
     Dosage: 100 MCG
     Route: 065
  9. AZD2281 [Suspect]
     Active Substance: OLAPARIB
     Indication: ENDOMETRIAL CANCER RECURRENT
     Route: 048
     Dates: start: 20160527
  10. SYNTHROID [Concomitant]
     Active Substance: LEVOTHYROXINE SODIUM
     Dosage: 125 MCG
     Route: 065
  11. CHROMIUM-BRINDAL BERRY [Concomitant]
     Dosage: 200-500 MCG-MG
     Route: 065

REACTIONS (1)
  - Sepsis [Unknown]

NARRATIVE: CASE EVENT DATE: 20160613
